FAERS Safety Report 5226510-5 (Version None)
Quarter: 2007Q1

REPORT INFORMATION
  Report Type: 
  Country: None (occurrence: None)
  Receive Date: 20070201
  Receipt Date: 20070120
  Transmission Date: 20070707
  Serious: Yes (Death)
  Sender: FDA-Public Use
  Company Number: US-PFIZER INC-2006150872

PATIENT
  Sex: Male

DRUGS (3)
  1. ZYVOX [Suspect]
     Indication: PNEUMONIA
  2. ZYVOX [Suspect]
     Indication: STAPHYLOCOCCAL INFECTION
  3. ZOLOFT [Concomitant]
     Indication: DEPRESSION

REACTIONS (2)
  - AGITATION [None]
  - DEATH [None]
